FAERS Safety Report 9164904 (Version 1)
Quarter: 2013Q1

REPORT INFORMATION
  Report Type: Spontaneous
  Country: US (occurrence: US)
  Receive Date: 20130315
  Receipt Date: 20130315
  Transmission Date: 20140127
  Serious: No
  Sender: FDA-Public Use
  Company Number: US-MYLANLABS-2013S1001908

PATIENT
  Age: 44 Year
  Sex: Female
  Weight: 72.58 kg

DRUGS (5)
  1. CLOPIDOGREL TABLETS USP [Suspect]
     Indication: AORTIC STENOSIS
     Route: 048
     Dates: start: 20120614, end: 20120618
  2. CLOPIDOGREL TABLETS USP [Suspect]
     Indication: AORTIC STENOSIS
     Route: 048
     Dates: start: 201212
  3. METFORMIN [Concomitant]
     Indication: DIABETES MELLITUS
  4. DIOVAN [Concomitant]
     Indication: BLOOD PRESSURE INCREASED
  5. METOPROLOL [Concomitant]
     Indication: BLOOD PRESSURE INCREASED

REACTIONS (5)
  - Dizziness [Not Recovered/Not Resolved]
  - Abdominal pain [Not Recovered/Not Resolved]
  - Headache [Not Recovered/Not Resolved]
  - Pollakiuria [Not Recovered/Not Resolved]
  - Irritability [Not Recovered/Not Resolved]
